FAERS Safety Report 24056381 (Version 1)
Quarter: 2024Q3

REPORT INFORMATION
  Report Type: Spontaneous
  Country: US (occurrence: US)
  Receive Date: 20240705
  Receipt Date: 20240705
  Transmission Date: 20241016
  Serious: Yes (Hospitalization, Other)
  Sender: ASCENT
  Company Number: US-ASCENT-2024ASLIT00009

PATIENT
  Age: 42 Year
  Sex: Male

DRUGS (18)
  1. DEXTROAMPHET SACCHARAT, AMPHET ASPARTATE, DEXTROAMPHET SULFATE AND AMP [Suspect]
     Active Substance: AMPHETAMINE ASPARTATE\AMPHETAMINE SULFATE\DEXTROAMPHETAMINE SACCHARATE\DEXTROAMPHETAMINE SULFATE
     Indication: Depression
     Dosage: EXTENDED RELEASE
     Route: 065
  2. PSILOCYBIN [Suspect]
     Active Substance: PSILOCYBIN
     Indication: Depression
     Route: 065
  3. TRANYLCYPROMINE [Suspect]
     Active Substance: TRANYLCYPROMINE
     Indication: Depression
     Route: 065
  4. TRANYLCYPROMINE [Suspect]
     Active Substance: TRANYLCYPROMINE
     Route: 065
  5. TRANYLCYPROMINE [Suspect]
     Active Substance: TRANYLCYPROMINE
     Route: 065
  6. PHENELZINE [Concomitant]
     Active Substance: PHENELZINE
     Indication: Depression
     Route: 065
  7. NORTRIPTYLINE [Concomitant]
     Active Substance: NORTRIPTYLINE
     Indication: Depression
     Route: 065
  8. ATORVASTATIN [Concomitant]
     Active Substance: ATORVASTATIN
     Indication: Hyperlipidaemia
     Route: 065
  9. FENOFIBRATE [Concomitant]
     Active Substance: FENOFIBRATE
     Indication: Hyperlipidaemia
     Route: 065
  10. GLIPIZIDE [Concomitant]
     Active Substance: GLIPIZIDE
     Indication: Type 2 diabetes mellitus
     Route: 065
  11. LIRAGLUTIDE [Concomitant]
     Active Substance: LIRAGLUTIDE
     Indication: Type 2 diabetes mellitus
     Route: 058
  12. METFORMIN [Concomitant]
     Active Substance: METFORMIN HYDROCHLORIDE
     Indication: Type 2 diabetes mellitus
     Route: 065
  13. OMEPRAZOLE [Concomitant]
     Active Substance: OMEPRAZOLE
     Indication: Gastrooesophageal reflux disease
     Route: 065
  14. PROPRANOLOL [Concomitant]
     Active Substance: PROPRANOLOL HYDROCHLORIDE
     Indication: Essential tremor
     Route: 065
  15. VALPROATE [Concomitant]
     Active Substance: VALPROIC ACID
     Indication: Depression
     Dosage: NIGHTLY
     Route: 065
  16. ZOLPIDEM [Concomitant]
     Active Substance: ZOLPIDEM TARTRATE
     Indication: Obstructive sleep apnoea syndrome
     Dosage: NIGHTLY
     Route: 065
  17. LITHIUM [Concomitant]
     Active Substance: LITHIUM
     Indication: Depression
     Route: 065
  18. SELEGILINE [Concomitant]
     Active Substance: SELEGILINE
     Indication: Depression
     Route: 065

REACTIONS (5)
  - Hypertensive emergency [Recovered/Resolved]
  - Acute coronary syndrome [Recovered/Resolved]
  - Food interaction [Unknown]
  - Drug interaction [Unknown]
  - Acute myocardial infarction [Recovered/Resolved]
